FAERS Safety Report 13880716 (Version 1)
Quarter: 2017Q3

REPORT INFORMATION
  Report Type: Spontaneous
  Country: US (occurrence: US)
  Receive Date: 20170818
  Receipt Date: 20170818
  Transmission Date: 20171127
  Serious: No
  Sender: FDA-Public Use
  Company Number: US-WEST-WARD PHARMACEUTICALS CORP.-US-H14001-17-00534

PATIENT
  Age: 38 Year
  Sex: Female

DRUGS (2)
  1. XIFAXAN [Suspect]
     Active Substance: RIFAXIMIN
     Indication: GASTROINTESTINAL BACTERIAL OVERGROWTH
     Route: 048
     Dates: start: 2013
  2. VANCOMYCIN [Suspect]
     Active Substance: VANCOMYCIN
     Indication: GASTROINTESTINAL BACTERIAL OVERGROWTH
     Route: 065

REACTIONS (3)
  - Off label use [Recovered/Resolved]
  - Tinnitus [Unknown]
  - Dizziness [Recovered/Resolved]
